FAERS Safety Report 9410747 (Version 1)
Quarter: 2013Q3

REPORT INFORMATION
  Report Type: Report from Study
  Country: CA (occurrence: CA)
  Receive Date: 20130719
  Receipt Date: 20130719
  Transmission Date: 20140515
  Serious: Yes (Hospitalization, Other)
  Sender: FDA-Public Use
  Company Number: CA-ABBOTT-13P-028-1115404-00

PATIENT
  Age: 83 Year
  Sex: Female

DRUGS (27)
  1. HUMIRA [Suspect]
     Indication: CROHN^S DISEASE
     Route: 058
     Dates: start: 20100720, end: 201306
  2. HUMIRA [Suspect]
     Route: 058
     Dates: start: 20130701
  3. ZOVIRAX [Concomitant]
     Indication: ORAL HERPES
  4. PENTASA [Concomitant]
     Indication: PRODUCT USED FOR UNKNOWN INDICATION
  5. ACETAMINOPHEN [Concomitant]
     Indication: PRODUCT USED FOR UNKNOWN INDICATION
     Dosage: AT BEDTIME
  6. ASPIRIN (E.C.) [Concomitant]
     Indication: PRODUCT USED FOR UNKNOWN INDICATION
  7. ACYCLOVIR [Concomitant]
     Indication: ORAL HERPES
     Route: 061
  8. ALENDRONATE [Concomitant]
     Indication: PRODUCT USED FOR UNKNOWN INDICATION
  9. NORVASC [Concomitant]
     Indication: PRODUCT USED FOR UNKNOWN INDICATION
  10. ASCORBIC ACID [Concomitant]
     Indication: PRODUCT USED FOR UNKNOWN INDICATION
  11. CALCIUM + VITAMIN D [Concomitant]
     Indication: PRODUCT USED FOR UNKNOWN INDICATION
  12. CLONAZEPAM [Concomitant]
     Indication: PRODUCT USED FOR UNKNOWN INDICATION
     Dosage: AT BEDTIME
  13. VITAMIN B12 [Concomitant]
     Indication: PRODUCT USED FOR UNKNOWN INDICATION
     Route: 030
  14. GRAVOL [Concomitant]
     Indication: PRODUCT USED FOR UNKNOWN INDICATION
     Dosage: AT BEDTIME
  15. FERROUS GLUCONATE [Concomitant]
     Indication: PRODUCT USED FOR UNKNOWN INDICATION
  16. ADVAIR [Concomitant]
     Indication: PRODUCT USED FOR UNKNOWN INDICATION
  17. FOLIC ACID [Concomitant]
     Indication: PRODUCT USED FOR UNKNOWN INDICATION
  18. FUROSEMIDE [Concomitant]
     Indication: PRODUCT USED FOR UNKNOWN INDICATION
  19. SYNTHROID [Concomitant]
     Indication: PRODUCT USED FOR UNKNOWN INDICATION
  20. SINGULAIR [Concomitant]
     Indication: PRODUCT USED FOR UNKNOWN INDICATION
  21. MULTIVITAMINS [Concomitant]
     Indication: PRODUCT USED FOR UNKNOWN INDICATION
  22. REBAPRAZOLE [Concomitant]
     Indication: PRODUCT USED FOR UNKNOWN INDICATION
  23. SALBUTAMOL [Concomitant]
     Indication: PRODUCT USED FOR UNKNOWN INDICATION
  24. SPIRIVA [Concomitant]
     Indication: PRODUCT USED FOR UNKNOWN INDICATION
  25. POLYSPORIN [Concomitant]
     Indication: PRODUCT USED FOR UNKNOWN INDICATION
  26. LOPERAMIDE [Concomitant]
     Indication: DIARRHOEA
     Dosage: 5 TO 10 MLS, 3 TIMES DAILY, AS NEEDED
  27. VENTOLIN [Concomitant]
     Indication: PRODUCT USED FOR UNKNOWN INDICATION

REACTIONS (34)
  - Pyrexia [Unknown]
  - Intestinal anastomosis [Unknown]
  - Crohn^s disease [Not Recovered/Not Resolved]
  - Abdominal pain [Unknown]
  - Diarrhoea [Unknown]
  - Abdominal pain lower [Unknown]
  - Vomiting [Recovered/Resolved]
  - Asthenia [Unknown]
  - Somnolence [Unknown]
  - Fatigue [Unknown]
  - Constipation [Unknown]
  - Hepatic cirrhosis [Unknown]
  - Fat tissue increased [Unknown]
  - Skin fissures [Unknown]
  - Cough [Recovered/Resolved]
  - Oropharyngeal pain [Recovered/Resolved]
  - Dysphonia [Recovered/Resolved]
  - Memory impairment [Not Recovered/Not Resolved]
  - Tongue discolouration [Unknown]
  - Oral herpes [Not Recovered/Not Resolved]
  - Laryngitis [Unknown]
  - Breath sounds abnormal [Unknown]
  - Diarrhoea [Unknown]
  - Blood potassium decreased [Unknown]
  - Diverticulum intestinal [Unknown]
  - Spinal osteoarthritis [Unknown]
  - Intestinal mucosal hypertrophy [Unknown]
  - Colitis [Unknown]
  - Splenomegaly [Unknown]
  - Ascites [Unknown]
  - Pancytopenia [Unknown]
  - Abdominal discomfort [Unknown]
  - Osteoarthritis [Unknown]
  - Atelectasis [Unknown]
